FAERS Safety Report 12795172 (Version 2)
Quarter: 2016Q4

REPORT INFORMATION
  Report Type: Spontaneous
  Country: US (occurrence: US)
  Receive Date: 20160929
  Receipt Date: 20161229
  Transmission Date: 20170207
  Serious: Yes (Other)
  Sender: FDA-Public Use
  Company Number: US-DSJP-DSU-2016-132006

PATIENT

DRUGS (3)
  1. BENICAR [Suspect]
     Active Substance: OLMESARTAN MEDOXOMIL
     Indication: HYPERTENSION
     Dosage: 40 MG, QD
     Route: 048
     Dates: start: 2014, end: 201505
  2. BENICAR HCT [Suspect]
     Active Substance: HYDROCHLOROTHIAZIDE\OLMESARTAN MEDOXOMIL
     Indication: HYPERTENSION
     Dosage: UNK
     Dates: start: 2014, end: 201505
  3. ASPIRIN                            /00002701/ [Concomitant]
     Active Substance: ASPIRIN
     Indication: PRODUCT USED FOR UNKNOWN INDICATION
     Dosage: UNK

REACTIONS (7)
  - Diverticulitis [Not Recovered/Not Resolved]
  - Weight decreased [Unknown]
  - Anaemia [Unknown]
  - Diverticulum [Not Recovered/Not Resolved]
  - Hypokalaemia [Unknown]
  - Diarrhoea [Unknown]
  - Cholecystectomy [Unknown]

NARRATIVE: CASE EVENT DATE: 201407
